FAERS Safety Report 7551485-3 (Version None)
Quarter: 2011Q2

REPORT INFORMATION
  Report Type: 
  Country: None (occurrence: None)
  Receive Date: 20110616
  Receipt Date: 20110601
  Transmission Date: 20111010
  Serious: Yes (Hospitalization)
  Sender: FDA-Public Use
  Company Number: CA-JNJFOC-20110506572

PATIENT
  Sex: Male
  Weight: 96 kg

DRUGS (9)
  1. TECTA [Concomitant]
     Route: 048
  2. MAVIK [Concomitant]
     Indication: PRODUCT USED FOR UNKNOWN INDICATION
     Route: 048
  3. REMICADE [Suspect]
     Indication: ANKYLOSING SPONDYLITIS
     Route: 042
     Dates: start: 20110512
  4. METOPROLOL [Concomitant]
     Route: 048
  5. ELAVIL [Concomitant]
     Route: 048
  6. BENADRYL [Concomitant]
     Indication: PREMEDICATION
     Route: 042
  7. LIPITOR [Concomitant]
     Route: 048
  8. ACETAMINOPHEN [Concomitant]
     Indication: PREMEDICATION
     Route: 048
  9. REMICADE [Suspect]
     Route: 042
     Dates: start: 20080401

REACTIONS (3)
  - INFLUENZA LIKE ILLNESS [None]
  - NEPHROLITHIASIS [None]
  - INFUSION RELATED REACTION [None]
